FAERS Safety Report 20905185 (Version 7)
Quarter: 2025Q2

REPORT INFORMATION
  Report Type: Spontaneous
  Country: DE (occurrence: DE)
  Receive Date: 20220602
  Receipt Date: 20250602
  Transmission Date: 20250717
  Serious: Yes (Hospitalization, Other)
  Sender: BAYER HEALTHCARE PHARMACEUTICALS INC.
  Company Number: None

PATIENT
  Age: 53 Year
  Sex: Female
  Weight: 68 kg

DRUGS (3)
  1. CIPROFLOXACIN [Suspect]
     Active Substance: CIPROFLOXACIN
     Indication: Acne pustular
     Dosage: 250 MG, BID
     Route: 048
     Dates: start: 20090515, end: 20090525
  2. CIPROFLOXACIN [Suspect]
     Active Substance: CIPROFLOXACIN
     Indication: Bacterial infection
  3. CIPROFLOXACIN [Suspect]
     Active Substance: CIPROFLOXACIN
     Indication: Acne

REACTIONS (21)
  - Myelosuppression [Recovered/Resolved with Sequelae]
  - Tibia fracture [Unknown]
  - Muscular weakness [Recovered/Resolved with Sequelae]
  - Muscle atrophy [Recovered/Resolved with Sequelae]
  - Muscle contractions involuntary [Recovered/Resolved with Sequelae]
  - Fatigue [Recovered/Resolved with Sequelae]
  - Paraesthesia [Recovered/Resolved with Sequelae]
  - Tremor [Recovered/Resolved with Sequelae]
  - Asthenia [Not Recovered/Not Resolved]
  - Connective tissue disorder [Unknown]
  - Restless legs syndrome [Unknown]
  - Collagen disorder [Not Recovered/Not Resolved]
  - Feeling abnormal [Unknown]
  - Formication [Recovered/Resolved with Sequelae]
  - Nervousness [Unknown]
  - Dyskinesia [Unknown]
  - Pain in extremity [Unknown]
  - Mental fatigue [Unknown]
  - Limb discomfort [Unknown]
  - Muscle spasms [Unknown]
  - Muscle twitching [Recovered/Resolved with Sequelae]

NARRATIVE: CASE EVENT DATE: 20100101
